FAERS Safety Report 23444178 (Version 1)
Quarter: 2024Q1

REPORT INFORMATION
  Report Type: Spontaneous
  Country: CN (occurrence: None)
  Receive Date: 20240125
  Receipt Date: 20240125
  Transmission Date: 20240409
  Serious: Yes (Other)
  Sender: FDA-Public Use
  Company Number: 2023A286465

PATIENT
  Age: 74 Year
  Sex: Female
  Weight: 60 kg

DRUGS (1)
  1. SYMBICORT [Suspect]
     Active Substance: BUDESONIDE\FORMOTEROL FUMARATE DIHYDRATE
     Indication: Asthma
     Dosage: 320?G/9?G/INHALATION, TWICE EACH DAY, ONE INHALATION EACH TIME
     Route: 055

REACTIONS (4)
  - Asthma [Recovering/Resolving]
  - Device malfunction [Unknown]
  - Drug dose omission by device [Unknown]
  - Device use issue [Unknown]

NARRATIVE: CASE EVENT DATE: 20231209
